FAERS Safety Report 6644219-8 (Version None)
Quarter: 2010Q1

REPORT INFORMATION
  Report Type: 
  Country: None (occurrence: None)
  Receive Date: 20100317
  Receipt Date: 20100303
  Transmission Date: 20100710
  Serious: Yes (Other)
  Sender: FDA-Public Use
  Company Number: 1000012363

PATIENT
  Age: 76 Year
  Sex: Male
  Weight: 82 kg

DRUGS (6)
  1. MEMANTINE HCL [Suspect]
     Indication: VASCULAR DEMENTIA
     Dosage: 10 MG (10 MG, 1 IN 1 D), ORAL
     Route: 048
     Dates: end: 20100209
  2. DIAVAN [Concomitant]
  3. METOPROLOL SUCCINATE [Concomitant]
  4. FUROSEMIDE [Concomitant]
  5. ALLOPURINOL [Concomitant]
  6. ASPIRIN [Concomitant]

REACTIONS (1)
  - HALLUCINATION, VISUAL [None]
